FAERS Safety Report 13872626 (Version 1)
Quarter: 2017Q3

REPORT INFORMATION
  Report Type: Spontaneous
  Country: US (occurrence: US)
  Receive Date: 20170816
  Receipt Date: 20170816
  Transmission Date: 20171127
  Serious: No
  Sender: FDA-Public Use
  Company Number: US-PFIZER INC-2017354297

PATIENT

DRUGS (1)
  1. SODIUM BICARBONATE. [Suspect]
     Active Substance: SODIUM BICARBONATE

REACTIONS (1)
  - Malaise [Unknown]
